FAERS Safety Report 4861585-4 (Version None)
Quarter: 2005Q4

REPORT INFORMATION
  Report Type: 
  Country: None (occurrence: None)
  Receive Date: 20051220
  Receipt Date: 20040219
  Transmission Date: 20060501
  Serious: Yes (Other)
  Sender: FDA-Public Use
  Company Number: CA-BRISTOL-MYERS SQUIBB COMPANY-12524864

PATIENT
  Age: 82 Year
  Sex: Female

DRUGS (19)
  1. TEQUIN [Suspect]
     Route: 048
  2. PREDNISONE TAB [Suspect]
     Route: 048
  3. ACETAMINOPHEN [Concomitant]
  4. CLOPIDOGREL BISULFATE [Concomitant]
  5. DIDROCAL [Concomitant]
  6. DOMPERIDONE [Concomitant]
  7. FUROSEMIDE [Concomitant]
  8. HYDROXYCHLOROQUINE SULFATE [Concomitant]
  9. LIPITOR [Concomitant]
  10. LORAZEPAM [Concomitant]
  11. MELOXICAM [Concomitant]
  12. OMEPRAZOLE [Concomitant]
  13. OXYCONTIN [Concomitant]
  14. POTASSIUM CHLORIDE [Concomitant]
  15. RAMIPRIL [Concomitant]
  16. SALMETEROL [Concomitant]
  17. TEMAZEPAM [Concomitant]
  18. THEOPHYLLINE [Concomitant]
  19. VERAPAMIL [Concomitant]

REACTIONS (11)
  - ABDOMINAL PAIN [None]
  - ASTHENIA [None]
  - CONFUSIONAL STATE [None]
  - DECREASED APPETITE [None]
  - FALL [None]
  - HYPERGLYCAEMIA [None]
  - HYPERHIDROSIS [None]
  - HYPOGLYCAEMIA [None]
  - POLLAKIURIA [None]
  - RENAL FUNCTION TEST [None]
  - THIRST [None]
